FAERS Safety Report 6458047-X (Version None)
Quarter: 2009Q4

REPORT INFORMATION
  Report Type: 
  Country: None (occurrence: None)
  Receive Date: 20091125
  Receipt Date: 20091120
  Transmission Date: 20100525
  Serious: Yes (Hospitalization, Other)
  Sender: FDA-Public Use
  Company Number: US-GENENTECH-232131

PATIENT
  Sex: Female

DRUGS (11)
  1. OMALIZUMAB [Suspect]
     Indication: ASTHMA
     Dosage: UNK, UNK
     Dates: start: 20061018
  2. PRILOSEC [Concomitant]
     Indication: DYSPEPSIA
  3. SYNTHROID [Concomitant]
     Indication: HYPOTENSION
  4. CHLORPHENIRAMINE MALEATE [Concomitant]
     Indication: HYPERSENSITIVITY
  5. METFORMIN HCL [Concomitant]
     Indication: POLYCYSTIC OVARIES
  6. SINGULAIR [Concomitant]
     Indication: ASTHMA
  7. TYLENOL [Concomitant]
     Indication: BACK PAIN
  8. ADVAIR DISKUS 100/50 [Concomitant]
     Indication: ASTHMA
  9. QVAR 40 [Concomitant]
     Indication: ASTHMA
  10. DARVOCET [Concomitant]
     Indication: BACK PAIN
  11. INSULIN [Concomitant]
     Indication: DRUG USE FOR UNKNOWN INDICATION

REACTIONS (2)
  - DRUG EXPOSURE DURING PREGNANCY [None]
  - HIGH RISK PREGNANCY [None]
